FAERS Safety Report 8982777 (Version 1)
Quarter: 2012Q4

REPORT INFORMATION
  Report Type: 
  Country: DK (occurrence: DK)
  Receive Date: 20121224
  Receipt Date: 20121224
  Transmission Date: 20130627
  Serious: Yes (Other)
  Sender: FDA-Public Use
  Company Number: DK-UCBSA-073715

PATIENT

DRUGS (1)
  1. CERTOLIZUMAB PEGOL [Suspect]

REACTIONS (2)
  - Palpitations [Unknown]
  - Dyspnoea [Unknown]
